FAERS Safety Report 17593597 (Version 1)
Quarter: 2020Q1

REPORT INFORMATION
  Report Type: Spontaneous
  Country: FR (occurrence: FR)
  Receive Date: 20200327
  Receipt Date: 20200327
  Transmission Date: 20200409
  Serious: Yes (Hospitalization)
  Sender: FDA-Public Use
  Company Number: FR-ABBVIE-20P-056-3337392-00

PATIENT
  Age: 46 Year
  Sex: Female
  Weight: 76 kg

DRUGS (5)
  1. ANTADYS [Concomitant]
     Active Substance: FLURBIPROFEN
     Indication: PAIN
     Dosage: UNK
     Route: 048
     Dates: start: 201912
  2. OMEPRAZOLE. [Concomitant]
     Active Substance: OMEPRAZOLE
     Indication: GASTROOESOPHAGEAL REFLUX DISEASE
     Dosage: UNK
     Route: 048
     Dates: start: 201907
  3. GAVISCON [Concomitant]
     Active Substance: ALUMINUM HYDROXIDE\MAGNESIUM CARBONATE
     Indication: GASTROOESOPHAGEAL REFLUX DISEASE
     Dosage: UNK
     Route: 048
     Dates: start: 201909
  4. ENANTONE LP [Suspect]
     Active Substance: LEUPROLIDE ACETATE
     Indication: BENIGN BREAST NEOPLASM
     Dosage: UNK UNK, MONTHLY
     Route: 058
     Dates: start: 20191228, end: 20200105
  5. TRAMADOL. [Concomitant]
     Active Substance: TRAMADOL
     Indication: PAIN
     Dosage: UNK
     Route: 048
     Dates: start: 201909

REACTIONS (6)
  - Erythema [Not Recovered/Not Resolved]
  - Pruritus [Not Recovered/Not Resolved]
  - Asthenia [Not Recovered/Not Resolved]
  - Nausea [Not Recovered/Not Resolved]
  - Face oedema [Not Recovered/Not Resolved]
  - Headache [Not Recovered/Not Resolved]

NARRATIVE: CASE EVENT DATE: 20200127
